FAERS Safety Report 6810477-X (Version None)
Quarter: 2010Q2

REPORT INFORMATION
  Report Type: 
  Country: None (occurrence: None)
  Receive Date: 20100630
  Receipt Date: 20100625
  Transmission Date: 20101027
  Serious: Yes (Other)
  Sender: FDA-Public Use
  Company Number: US-PFIZER INC-2010080271

PATIENT
  Sex: Male
  Weight: 97.506 kg

DRUGS (2)
  1. LIPITOR [Suspect]
     Dosage: UNK
  2. NIASPAN [Suspect]
     Dosage: 500 MG, 2X/DAY
     Route: 065

REACTIONS (2)
  - BLOOD PRESSURE INCREASED [None]
  - SLEEP APNOEA SYNDROME [None]
